FAERS Safety Report 6443490-5 (Version None)
Quarter: 2009Q4

REPORT INFORMATION
  Report Type: 
  Country: None (occurrence: None)
  Receive Date: 20091117
  Receipt Date: 20091104
  Transmission Date: 20100525
  Serious: Yes (Other)
  Sender: FDA-Public Use
  Company Number: DE-CELGENEUS-062-21880-09042003

PATIENT

DRUGS (5)
  1. REVLIMID [Suspect]
     Indication: MULTIPLE MYELOMA
     Route: 048
  2. REVLIMID [Suspect]
     Indication: CYTOGENETIC ABNORMALITY
     Route: 048
  3. DEXAMETHASONE [Suspect]
     Indication: MULTIPLE MYELOMA
     Route: 065
  4. CYTARABINE [Suspect]
     Indication: MULTIPLE MYELOMA
     Route: 065
  5. CISPLATIN [Suspect]
     Indication: MULTIPLE MYELOMA
     Route: 065

REACTIONS (9)
  - CEREBRAL INFARCTION [None]
  - CONSTIPATION [None]
  - FATIGUE [None]
  - GRAFT VERSUS HOST DISEASE [None]
  - INFECTION [None]
  - LEUKOPENIA [None]
  - MUSCLE SPASMS [None]
  - NEUTROPENIA [None]
  - THROMBOCYTOPENIA [None]
